FAERS Safety Report 10406957 (Version 1)
Quarter: 2014Q3

REPORT INFORMATION
  Report Type: Spontaneous
  Country: US (occurrence: None)
  Receive Date: 20140822
  Receipt Date: 20140822
  Transmission Date: 20150326
  Serious: No
  Sender: FDA-Public Use
  Company Number: None

PATIENT
  Age: 61 Year
  Sex: Male
  Weight: 83.92 kg

DRUGS (5)
  1. NEXIUM [Concomitant]
     Active Substance: ESOMEPRAZOLE MAGNESIUM
  2. TRAMADOL 50 MG [Suspect]
     Active Substance: TRAMADOL
     Indication: GALLBLADDER PAIN
     Route: 048
     Dates: start: 20140701, end: 20140707
  3. TRAMADOL 50 MG [Suspect]
     Active Substance: TRAMADOL
     Indication: CHOLELITHIASIS
     Route: 048
     Dates: start: 20140701, end: 20140707
  4. TRAZODONE [Concomitant]
     Active Substance: TRAZODONE HYDROCHLORIDE
  5. MULTI-VITAMIN WELLNESS FORMULA [Concomitant]

REACTIONS (5)
  - Dizziness [None]
  - Faeces discoloured [None]
  - Impaired driving ability [None]
  - Heart rate increased [None]
  - Malaise [None]

NARRATIVE: CASE EVENT DATE: 20140703
